FAERS Safety Report 5441394-8 (Version None)
Quarter: 2007Q3

REPORT INFORMATION
  Report Type: 
  Country: None (occurrence: None)
  Receive Date: 20070903
  Receipt Date: 20070828
  Transmission Date: 20080115
  Serious: Yes (Other)
  Sender: FDA-Public Use
  Company Number: US-BAYER-200712528BWH

PATIENT
  Age: 29 Year
  Sex: Female

DRUGS (7)
  1. NEXAVAR [Suspect]
     Indication: BRAIN NEOPLASM MALIGNANT
     Dosage: TOTAL DAILY DOSE: 800 MG  UNIT DOSE: 200 MG
     Route: 048
     Dates: start: 20070612
  2. METFORMIN [Concomitant]
  3. TEGRETOL [Concomitant]
  4. LAMICTAL [Concomitant]
  5. STEROID (NOS) [Concomitant]
  6. CODEINE SUL TAB [Concomitant]
  7. CALCIUM [Concomitant]

REACTIONS (5)
  - BLISTER [None]
  - CONVULSION [None]
  - MOTOR DYSFUNCTION [None]
  - OEDEMA PERIPHERAL [None]
  - RASH PRURITIC [None]
